FAERS Safety Report 15767990 (Version 1)
Quarter: 2018Q4

REPORT INFORMATION
  Report Type: Spontaneous
  Country: US (occurrence: US)
  Receive Date: 20181227
  Receipt Date: 20181227
  Transmission Date: 20190205
  Serious: No
  Sender: FDA-Public Use
  Company Number: US-LUNDBECK-DKLU2058428

PATIENT
  Age: 3 Year
  Sex: Female

DRUGS (4)
  1. TOPIRAMATE. [Suspect]
     Active Substance: TOPIRAMATE
     Indication: GENERALISED TONIC-CLONIC SEIZURE
     Route: 065
  2. OXCARBAZEPINE. [Suspect]
     Active Substance: OXCARBAZEPINE
     Indication: GENERALISED TONIC-CLONIC SEIZURE
     Route: 065
  3. CLOBAZAM. [Suspect]
     Active Substance: CLOBAZAM
     Indication: GENERALISED TONIC-CLONIC SEIZURE
     Route: 065
  4. CANNABIDIOL [Suspect]
     Active Substance: CANNABIDIOL
     Indication: GENERALISED TONIC-CLONIC SEIZURE
     Route: 065

REACTIONS (3)
  - Muscle spasms [Unknown]
  - Agitation [Unknown]
  - Insomnia [Unknown]
